FAERS Safety Report 21697866 (Version 1)
Quarter: 2022Q4

REPORT INFORMATION
  Report Type: Spontaneous
  Country: GB (occurrence: GB)
  Receive Date: 20221208
  Receipt Date: 20221208
  Transmission Date: 20230113
  Serious: No
  Sender: FDA-Public Use
  Company Number: GB-ALKEM LABORATORIES LIMITED-CH-ALKEM-2022-11032

PATIENT
  Age: 11 Year
  Sex: Male

DRUGS (2)
  1. TOLVAPTAN [Suspect]
     Active Substance: TOLVAPTAN
     Indication: Hyponatraemia
     Dosage: 0.14 MILLIGRAM/KILOGRAM, OD, ON DAY 13
     Route: 048
  2. TOLVAPTAN [Suspect]
     Active Substance: TOLVAPTAN
     Indication: Inappropriate antidiuretic hormone secretion
     Dosage: 0.28 MILLIGRAM/KILOGRAM, BID
     Route: 048

REACTIONS (2)
  - Rash [Unknown]
  - Urine output increased [Unknown]
